FAERS Safety Report 10039154 (Version 2)
Quarter: 2014Q2

REPORT INFORMATION
  Report Type: Spontaneous
  Country: US (occurrence: US)
  Receive Date: 20140326
  Receipt Date: 20140404
  Transmission Date: 20141212
  Serious: Yes (Other)
  Sender: FDA-Public Use
  Company Number: US-TEVA-470920USA

PATIENT
  Age: 52 Year
  Sex: Female

DRUGS (1)
  1. COPAXONE [Suspect]
     Indication: MULTIPLE SCLEROSIS
     Route: 058
     Dates: start: 20090701

REACTIONS (4)
  - Sinusitis [Unknown]
  - Clostridium difficile infection [Unknown]
  - Tendon injury [Not Recovered/Not Resolved]
  - Hysterectomy [Unknown]
